FAERS Safety Report 8963010 (Version 1)
Quarter: 2012Q4

REPORT INFORMATION
  Report Type: 
  Country: US (occurrence: US)
  Receive Date: 20121213
  Receipt Date: 20121213
  Transmission Date: 20130627
  Serious: Yes (Other)
  Sender: FDA-Public Use
  Company Number: US-PFIZER INC-2012310076

PATIENT
  Sex: Male

DRUGS (1)
  1. VIAGRA [Suspect]
     Dosage: UNK

REACTIONS (5)
  - Drug administration error [Unknown]
  - Abasia [Unknown]
  - Erection increased [Unknown]
  - Penile pain [Unknown]
  - Penis disorder [Unknown]
